FAERS Safety Report 21622908 (Version 1)
Quarter: 2022Q4

REPORT INFORMATION
  Report Type: Spontaneous
  Country: CN (occurrence: CN)
  Receive Date: 20221121
  Receipt Date: 20221121
  Transmission Date: 20230113
  Serious: Yes (Hospitalization, Other)
  Sender: FDA-Public Use
  Company Number: CN-GLAXOSMITHKLINE-CN2022GSK164351

PATIENT

DRUGS (6)
  1. LAMOTRIGINE [Interacting]
     Active Substance: LAMOTRIGINE
     Indication: Status epilepticus
     Dosage: 12.5 MG, 1D
  2. LEVETIRACETAM [Interacting]
     Active Substance: LEVETIRACETAM
     Indication: Status epilepticus
     Dosage: UNK
  3. VALPROATE SODIUM [Interacting]
     Active Substance: VALPROATE SODIUM
     Indication: Status epilepticus
     Dosage: UNK
  4. TOPIRAMATE [Interacting]
     Active Substance: TOPIRAMATE
     Indication: Status epilepticus
     Dosage: UNK
  5. CLONAZEPAM [Interacting]
     Active Substance: CLONAZEPAM
     Indication: Status epilepticus
     Dosage: UNK
  6. OXCARBAZEPINE [Interacting]
     Active Substance: OXCARBAZEPINE
     Indication: Partial seizures with secondary generalisation
     Dosage: UNK

REACTIONS (14)
  - Acute hepatic failure [Recovered/Resolved]
  - Drug-induced liver injury [Recovered/Resolved]
  - Hepatic encephalopathy [Recovered/Resolved]
  - Pyrexia [Recovered/Resolved]
  - Depressed level of consciousness [Recovered/Resolved]
  - Intellectual disability [Recovered/Resolved]
  - Hypokinesia [Recovered/Resolved]
  - Hepatomegaly [Recovered/Resolved]
  - Splenomegaly [Recovered/Resolved]
  - Cholecystitis [Recovered/Resolved]
  - Vomiting [Unknown]
  - Diarrhoea [Unknown]
  - Drug interaction [Unknown]
  - Overdose [Unknown]
